FAERS Safety Report 9016084 (Version 3)
Quarter: 2013Q1

REPORT INFORMATION
  Report Type: Spontaneous
  Country: CA (occurrence: CA)
  Receive Date: 20130116
  Receipt Date: 20130328
  Transmission Date: 20140127
  Serious: Yes (Other)
  Sender: FDA-Public Use
  Company Number: CA-PFIZER INC-2013018361

PATIENT
  Age: 55 Year
  Sex: Female

DRUGS (7)
  1. ALTACE [Suspect]
     Indication: BLOOD PRESSURE INCREASED
     Dosage: 5 MG, DAILY
     Route: 048
  2. CYMBALTA [Concomitant]
     Indication: DEPRESSION
     Dosage: UNK
  3. SYNTHROID [Concomitant]
     Dosage: UNK
  4. PARIET [Concomitant]
     Dosage: UNK
  5. REMERON [Concomitant]
     Dosage: UNK
  6. PREMARIN [Concomitant]
     Dosage: UNK
  7. MEDROXYPROGESTERONE [Concomitant]
     Dosage: UNK

REACTIONS (1)
  - Gamma-glutamyltransferase increased [Unknown]
